FAERS Safety Report 6683158-3 (Version None)
Quarter: 2010Q2

REPORT INFORMATION
  Report Type: 
  Country: None (occurrence: None)
  Receive Date: 20100413
  Receipt Date: 20100331
  Transmission Date: 20101027
  Serious: Yes (Hospitalization)
  Sender: FDA-Public Use
  Company Number: 8048631

PATIENT
  Sex: Female
  Weight: 97 kg

DRUGS (7)
  1. CERTOLIZUMAB PEGOL (CERTOLIZUMAB PEGOL) [Suspect]
     Indication: RHEUMATOID ARTHRITIS
     Dosage: 400 MG, ONCE MONTHLY SUBCUTANEOUS, 400 MG, ONCE MONTHLY SUBCUTANEOUS
     Route: 058
     Dates: start: 20030908, end: 20090707
  2. QUENSYL [Concomitant]
  3. OBSIDAN [Concomitant]
  4. AMLODIPINE [Concomitant]
  5. AMITRIPTYLINE HCL [Concomitant]
  6. LEVOTHYROXINE SODIUM [Concomitant]
  7. PANTOPRAZOLE [Concomitant]

REACTIONS (5)
  - BRONCHITIS CHRONIC [None]
  - CHRONIC OBSTRUCTIVE PULMONARY DISEASE [None]
  - GASTROOESOPHAGEAL REFLUX DISEASE [None]
  - HYPOTHYROIDISM [None]
  - SINUSITIS [None]
